FAERS Safety Report 19361254 (Version 3)
Quarter: 2021Q3

REPORT INFORMATION
  Report Type: Spontaneous
  Country: US (occurrence: MX)
  Receive Date: 20210601
  Receipt Date: 20210929
  Transmission Date: 20211014
  Serious: Yes (Disabling, Other)
  Sender: FDA-Public Use
  Company Number: MX-BIOMARINAP-MX-2021-136746

PATIENT
  Age: 8 Year
  Sex: Male

DRUGS (3)
  1. ALDURAZYME [Suspect]
     Active Substance: LARONIDASE
     Dosage: 4000 U, QOW
     Route: 041
     Dates: start: 20170615, end: 20200825
  2. ALDURAZYME [Suspect]
     Active Substance: LARONIDASE
     Indication: MUCOPOLYSACCHARIDOSIS I
     Dosage: 4000 UNITS, QOW
     Route: 041
     Dates: start: 2014
  3. ALDURAZYME [Suspect]
     Active Substance: LARONIDASE
     Dosage: UNK
     Route: 042

REACTIONS (11)
  - Dental caries [Unknown]
  - Gait disturbance [Unknown]
  - Pharyngitis [Unknown]
  - Wheelchair user [Unknown]
  - Pyrexia [Unknown]
  - Ill-defined disorder [Not Recovered/Not Resolved]
  - Influenza [Recovered/Resolved]
  - Intentional dose omission [Unknown]
  - Pyrexia [Unknown]
  - Illness [Not Recovered/Not Resolved]
  - Inappropriate schedule of product administration [Unknown]

NARRATIVE: CASE EVENT DATE: 2014
